FAERS Safety Report 8365242-1 (Version None)
Quarter: 2012Q2

REPORT INFORMATION
  Report Type: 
  Country: None (occurrence: None)
  Receive Date: 20120516
  Receipt Date: 20120508
  Transmission Date: 20120825
  Serious: Yes (Other)
  Sender: FDA-Public Use
  Company Number: US-INCYTE CORPORATION-2012IN000577

PATIENT
  Sex: Male
  Weight: 87.982 kg

DRUGS (5)
  1. JAKAFI [Suspect]
     Indication: MYELOFIBROSIS
     Dosage: 15 MG, BID
     Route: 048
     Dates: start: 20120220, end: 20120419
  2. SPIRONOLACTONE [Concomitant]
  3. PROPRANOLOL [Concomitant]
  4. PRILOSEC [Concomitant]
  5. LASIX [Concomitant]

REACTIONS (4)
  - ANAEMIA [None]
  - THROMBOCYTOPENIA [None]
  - ASCITES [None]
  - DRUG INEFFECTIVE [None]
